FAERS Safety Report 4429573-X (Version None)
Quarter: 2004Q3

REPORT INFORMATION
  Report Type: 
  Country: None (occurrence: None)
  Receive Date: 20040816
  Receipt Date: 20020923
  Transmission Date: 20050211
  Serious: Yes (Death, Hospitalization)
  Sender: FDA-Public Use
  Company Number: EMADSS2001003345

PATIENT
  Age: 44 Year
  Sex: Female
  Weight: 77.2 kg

DRUGS (2)
  1. TOPIRAMATE [Suspect]
     Indication: OBESITY
     Dosage: 96 MG, IN 1 DAY, ORAL
     Route: 048
     Dates: start: 20010320, end: 20010523
  2. ATORVASTATIN (ATORVASTATIN) [Concomitant]

REACTIONS (18)
  - ADENOCARCINOMA [None]
  - BILE DUCT OBSTRUCTION [None]
  - BILE DUCT STONE [None]
  - CHOLANGITIS [None]
  - CHOLECYSTITIS [None]
  - CHOLELITHIASIS [None]
  - CHOLESTASIS [None]
  - DIARRHOEA [None]
  - DIZZINESS [None]
  - DYSGEUSIA [None]
  - GALLBLADDER ENLARGEMENT [None]
  - KIDNEY SMALL [None]
  - METASTASES TO LIVER [None]
  - PANCREATIC CARCINOMA [None]
  - PARAESTHESIA [None]
  - SPLENOMEGALY [None]
  - SURGICAL PROCEDURE REPEATED [None]
  - VERTIGO [None]
